FAERS Safety Report 23208167 (Version 3)
Quarter: 2024Q1

REPORT INFORMATION
  Report Type: Spontaneous
  Country: CA (occurrence: CA)
  Receive Date: 20231121
  Receipt Date: 20240214
  Transmission Date: 20240410
  Serious: Yes (Other)
  Sender: FDA-Public Use
  Company Number: CA-CELLTRION INC.-2021CA018769

PATIENT

DRUGS (18)
  1. INFLECTRA [Suspect]
     Active Substance: INFLIXIMAB-DYYB
     Indication: Colitis ulcerative
     Dosage: INDUCTION DOSES AT WEEK 0, 2 AND 6, THEN Q 8 WEEKS
     Route: 042
     Dates: start: 20190926, end: 20191231
  2. INFLECTRA [Suspect]
     Active Substance: INFLIXIMAB-DYYB
     Dosage: EVERY 8 WEEKS
     Route: 042
     Dates: start: 20200225
  3. INFLECTRA [Suspect]
     Active Substance: INFLIXIMAB-DYYB
     Dosage: EVERY 8 WEEKS
     Route: 042
     Dates: start: 20211101
  4. INFLECTRA [Suspect]
     Active Substance: INFLIXIMAB-DYYB
     Dosage: EVERY 8 WEEKS
     Route: 042
     Dates: start: 20220112
  5. INFLECTRA [Suspect]
     Active Substance: INFLIXIMAB-DYYB
     Dosage: EVERY 8 WEEKS
     Route: 042
     Dates: start: 20230529
  6. INFLECTRA [Suspect]
     Active Substance: INFLIXIMAB-DYYB
     Dosage: EVERY 8 WEEKS
     Route: 042
     Dates: start: 20230529
  7. INFLECTRA [Suspect]
     Active Substance: INFLIXIMAB-DYYB
     Dosage: EVERY 8 WEEKS
     Route: 042
     Dates: start: 20230721
  8. INFLECTRA [Suspect]
     Active Substance: INFLIXIMAB-DYYB
     Dosage: 1090 MG EVERY 8 WEEKS
     Route: 042
     Dates: start: 20230915
  9. INFLECTRA [Suspect]
     Active Substance: INFLIXIMAB-DYYB
     Dosage: 1070 MG EVERY 8 WEEKS
     Route: 042
     Dates: start: 20231110
  10. INFLECTRA [Suspect]
     Active Substance: INFLIXIMAB-DYYB
     Dosage: 1070 MG EVERY 8 WEEKS
     Route: 042
     Dates: start: 20240102
  11. ATORVASTATIN [Concomitant]
     Active Substance: ATORVASTATIN
     Dosage: 1 DF
  12. DOM ATORVASTATIN [Concomitant]
     Dosage: 1 DF
  13. EZETIMIBE [Concomitant]
     Active Substance: EZETIMIBE
     Dosage: 1 DF
  14. LAMISIL [Concomitant]
     Active Substance: TERBINAFINE HYDROCHLORIDE
     Dosage: 1 DF
  15. PREDNISONE [Concomitant]
     Active Substance: PREDNISONE
     Dosage: 1 DF
  16. PRIVA EZETIMIBE [Concomitant]
     Dosage: 1 DF
  17. VENLAFAXINE [Concomitant]
     Active Substance: VENLAFAXINE HYDROCHLORIDE
     Dosage: 1 DF
  18. CHOLECALCIFEROL [Concomitant]
     Active Substance: CHOLECALCIFEROL
     Dosage: 1 DF

REACTIONS (12)
  - Eye pruritus [Not Recovered/Not Resolved]
  - Ocular hyperaemia [Recovered/Resolved]
  - Periorbital swelling [Recovering/Resolving]
  - Drug ineffective [Unknown]
  - Condition aggravated [Recovered/Resolved]
  - COVID-19 [Not Recovered/Not Resolved]
  - Nasal congestion [Not Recovered/Not Resolved]
  - Oropharyngeal pain [Not Recovered/Not Resolved]
  - Eye swelling [Recovering/Resolving]
  - Eyelid oedema [Recovering/Resolving]
  - Ocular hyperaemia [Recovered/Resolved]
  - Eye oedema [Not Recovered/Not Resolved]

NARRATIVE: CASE EVENT DATE: 20211201
